FAERS Safety Report 4639232-6 (Version None)
Quarter: 2005Q2

REPORT INFORMATION
  Report Type: 
  Country: None (occurrence: None)
  Receive Date: 20050418
  Receipt Date: 20050406
  Transmission Date: 20051028
  Serious: Yes (Hospitalization)
  Sender: FDA-Public Use
  Company Number: FRWYE560806APR05

PATIENT
  Age: 38 Year
  Sex: Female

DRUGS (2)
  1. MINIDRIL (LEVONORGESTREL/ETHINYL ESTRADIOL, TABLET, 0) [Suspect]
     Indication: CONTRACEPTION
     Dosage: 1 TABLET 1X PER 1 DAY ORAL
     Route: 048
  2. TARDYFERON (FERROUS SULFATE, , 0) [Suspect]
     Dosage: ORAL
     Route: 048

REACTIONS (1)
  - LIVEDO RETICULARIS [None]
